FAERS Safety Report 10788166 (Version 1)
Quarter: 2015Q1

REPORT INFORMATION
  Report Type: Spontaneous
  Country: US (occurrence: US)
  Receive Date: 20150212
  Receipt Date: 20150212
  Transmission Date: 20150721
  Serious: No
  Sender: FDA-Public Use
  Company Number: US-GLAXOSMITHKLINE-A1086966A

PATIENT

DRUGS (1)
  1. ADVAIR DISKUS [Suspect]
     Active Substance: FLUTICASONE PROPIONATE\SALMETEROL XINAFOATE
     Indication: EMPHYSEMA
     Dosage: 115/21 MCG UNKNOWN DOSING
     Route: 065
     Dates: start: 201102

REACTIONS (3)
  - Dysphonia [Unknown]
  - Drug administration error [Unknown]
  - Productive cough [Unknown]
